FAERS Safety Report 17134232 (Version 1)
Quarter: 2019Q4

REPORT INFORMATION
  Report Type: Spontaneous
  Country: NL (occurrence: NL)
  Receive Date: 20191210
  Receipt Date: 20191210
  Transmission Date: 20200122
  Serious: Yes (Hospitalization)
  Sender: FDA-Public Use
  Company Number: NL-TEVA-2019-NL-1148317

PATIENT
  Age: 20 Year
  Sex: Female
  Weight: 60 kg

DRUGS (3)
  1. AZITROMYCINE TABLET, 250 MG (MILLIGRAM) [Suspect]
     Active Substance: AZITHROMYCIN
     Indication: INFECTION
     Dosage: 1ST DAY 2 AT A TIME, THEN 1 TABLET ONCE A DAY , 1 DOSAGE FORMS 1 DAYS
     Dates: start: 20191101, end: 20191103
  2. METHYLFENIDAAT 10 MG [Concomitant]
     Dosage: MORNING 1, AFTERNOON HALF A TABLET , 1 DOSAGE FORMS 12 HOURS
  3. MICROGYNON 50 [Concomitant]

REACTIONS (4)
  - Dyspnoea [Recovering/Resolving]
  - Pharyngeal swelling [Recovering/Resolving]
  - Swollen tongue [Recovering/Resolving]
  - Hypersensitivity [Recovering/Resolving]

NARRATIVE: CASE EVENT DATE: 20191103
